FAERS Safety Report 11906450 (Version 1)
Quarter: 2016Q1

REPORT INFORMATION
  Report Type: Spontaneous
  Country: US (occurrence: None)
  Receive Date: 20160108
  Receipt Date: 20160108
  Transmission Date: 20160526
  Serious: No
  Sender: FDA-Public Use
  Company Number: None

PATIENT
  Age: 26 Year
  Sex: Female
  Weight: 54.89 kg

DRUGS (6)
  1. CONFIANZA [Concomitant]
  2. VITAMIN B12 [Concomitant]
     Active Substance: CYANOCOBALAMIN
  3. VITAMIN D3 [Concomitant]
     Active Substance: CHOLECALCIFEROL
  4. NEXPLANON [Suspect]
     Active Substance: ETONOGESTREL
     Dates: start: 20151101, end: 20160107
  5. BIOTIN W/KERATIN [Concomitant]
  6. IRON [Concomitant]
     Active Substance: IRON

REACTIONS (1)
  - Weight increased [None]

NARRATIVE: CASE EVENT DATE: 20150701
